FAERS Safety Report 5703305-7 (Version None)
Quarter: 2008Q2

REPORT INFORMATION
  Report Type: 
  Country: None (occurrence: None)
  Receive Date: 20080411
  Receipt Date: 20080331
  Transmission Date: 20081010
  Serious: Yes (Other)
  Sender: FDA-Public Use
  Company Number: BR-PFIZER INC-2008021765

PATIENT
  Sex: Female
  Weight: 55 kg

DRUGS (5)
  1. DEPO-PROVERA SUSPENSION/INJ [Suspect]
     Indication: CONTRACEPTION
     Route: 030
     Dates: start: 20020101, end: 20020101
  2. DEPO-PROVERA SUSPENSION/INJ [Suspect]
     Indication: MENSTRUAL DISCOMFORT
     Route: 030
     Dates: start: 20080212, end: 20080212
  3. RIVOTRIL [Concomitant]
  4. AMITRIPTYLINE HCL [Concomitant]
  5. FLUOXETINE [Concomitant]

REACTIONS (24)
  - ABDOMINAL DISTENSION [None]
  - AGITATION [None]
  - AMENORRHOEA [None]
  - ANXIETY [None]
  - ARTHRALGIA [None]
  - ASTHENIA [None]
  - ASTHMA [None]
  - BACK PAIN [None]
  - BONE PAIN [None]
  - BREAST PAIN [None]
  - BREAST SWELLING [None]
  - DIZZINESS [None]
  - EATING DISORDER [None]
  - FEELING ABNORMAL [None]
  - HOT FLUSH [None]
  - HYPERHIDROSIS [None]
  - MALAISE [None]
  - MULTIPLE FRACTURES [None]
  - MUSCLE SPASMS [None]
  - NERVOUSNESS [None]
  - OEDEMA PERIPHERAL [None]
  - PAIN IN EXTREMITY [None]
  - URINARY TRACT INFECTION [None]
  - WEIGHT INCREASED [None]
